FAERS Safety Report 11116229 (Version 1)
Quarter: 2015Q2

REPORT INFORMATION
  Report Type: Spontaneous
  Country: JP (occurrence: JP)
  Receive Date: 20150515
  Receipt Date: 20150515
  Transmission Date: 20150821
  Serious: Yes (Other)
  Sender: FDA-Public Use
  Company Number: JP-WATSON-2015-09816

PATIENT
  Age: 28 Year
  Sex: Male

DRUGS (6)
  1. DEXAMETHASONE (UNKNOWN) [Suspect]
     Active Substance: DEXAMETHASONE
     Indication: HISTIOCYTOSIS HAEMATOPHAGIC
     Dosage: 16.5 MG, DAILY
     Route: 048
  2. ETOPOSIDE (UNKNOWN) [Suspect]
     Active Substance: ETOPOSIDE
     Indication: HISTIOCYTOSIS HAEMATOPHAGIC
     Dosage: 240 MG, 1/TWO WEEKS
     Route: 065
  3. VORICONAZOLE (UNKNOWN) [Suspect]
     Active Substance: VORICONAZOLE
     Indication: FUNGAL INFECTION
     Dosage: 400 MG, DAILY
     Route: 065
  4. AMPHOTERICIN B. [Suspect]
     Active Substance: AMPHOTERICIN B
     Indication: FUNGAL INFECTION
     Dosage: 150 MG, DAILY
     Route: 065
     Dates: end: 20120907
  5. CYCLOSPORINE (UNKNOWN) [Suspect]
     Active Substance: CYCLOSPORINE
     Indication: HISTIOCYTOSIS HAEMATOPHAGIC
     Dosage: 120 MG, DAILY
     Route: 065
     Dates: end: 20120714
  6. ITRACONAZOLE (UNKNOWN) [Suspect]
     Active Substance: ITRACONAZOLE
     Indication: ANTIFUNGAL PROPHYLAXIS
     Dosage: 200 MG, DAILY
     Route: 048

REACTIONS (10)
  - Pseudomonas infection [Unknown]
  - Skin ulcer [Recovered/Resolved]
  - Therapeutic product ineffective [Unknown]
  - Bone marrow failure [Unknown]
  - Tooth infection [Unknown]
  - Renal impairment [Unknown]
  - Fungal infection [Recovered/Resolved]
  - Pseudomonal sepsis [Unknown]
  - Necrotising fasciitis [Recovered/Resolved]
  - Stoma site ulcer [Recovered/Resolved]

NARRATIVE: CASE EVENT DATE: 201201
